FAERS Safety Report 8296542-1 (Version None)
Quarter: 2012Q2

REPORT INFORMATION
  Report Type: 
  Country: None (occurrence: None)
  Receive Date: 20120418
  Receipt Date: 20120410
  Transmission Date: 20120825
  Serious: Yes (Hospitalization, Disabling, Other)
  Sender: FDA-Public Use
  Company Number: US-MERCK-1107USA03698

PATIENT
  Age: 68 Year
  Sex: Female
  Weight: 65 kg

DRUGS (8)
  1. FOSAMAX [Suspect]
     Route: 048
     Dates: start: 20071101, end: 20080301
  2. FOSAMAX [Suspect]
     Route: 048
     Dates: start: 20080319
  3. CALCIUM (UNSPECIFIED) [Concomitant]
     Route: 065
  4. FOSAMAX [Suspect]
     Route: 048
     Dates: start: 20090219, end: 20091001
  5. ZOCOR [Concomitant]
     Indication: BLOOD CHOLESTEROL
     Route: 048
  6. FOSAMAX [Suspect]
     Route: 048
     Dates: start: 20001001, end: 20071101
  7. VITAMIN D (UNSPECIFIED) [Concomitant]
     Route: 065
  8. FOSAMAX [Suspect]
     Indication: OSTEOPOROSIS
     Route: 048
     Dates: start: 19981101, end: 20001001

REACTIONS (69)
  - CONDUCTION DISORDER [None]
  - CATARACT [None]
  - SEASONAL ALLERGY [None]
  - HIATUS HERNIA [None]
  - BIOPSY SKIN [None]
  - ARTERIAL BRUIT [None]
  - ARTHRITIS [None]
  - ARTERIOSCLEROSIS [None]
  - ANXIETY [None]
  - IMPAIRED HEALING [None]
  - HEAD INJURY [None]
  - SEBACEOUS GLAND DISORDER [None]
  - NEOPLASM [None]
  - VITAMIN B12 DEFICIENCY [None]
  - BLOOD TRIGLYCERIDES [None]
  - MYOFASCIAL PAIN SYNDROME [None]
  - MUIR-TORRE SYNDROME [None]
  - INTERMITTENT CLAUDICATION [None]
  - PANCREATITIS [None]
  - ANAEMIA [None]
  - CAROTID ARTERY STENOSIS [None]
  - ECCHYMOSIS [None]
  - DYSLIPIDAEMIA [None]
  - DIVERTICULUM [None]
  - BURSITIS [None]
  - BONE LOSS [None]
  - ATRIAL FIBRILLATION [None]
  - ABSCESS ORAL [None]
  - BRONCHITIS CHRONIC [None]
  - GASTROOESOPHAGEAL REFLUX DISEASE [None]
  - NASAL NEOPLASM [None]
  - EMPHYSEMA [None]
  - COAGULOPATHY [None]
  - EXPOSED BONE IN JAW [None]
  - TRAUMATIC FRACTURE [None]
  - TRANSIENT ISCHAEMIC ATTACK [None]
  - DIZZINESS [None]
  - ATROPHY [None]
  - BLADDER CANCER [None]
  - CARDIAC DISORDER [None]
  - RENAL CANCER [None]
  - CONTUSION [None]
  - ORAL HERPES [None]
  - VENOUS INSUFFICIENCY [None]
  - FOLATE DEFICIENCY [None]
  - FALL [None]
  - PARAESTHESIA [None]
  - URINARY BLADDER POLYP [None]
  - TOOTH DISORDER [None]
  - TEMPOROMANDIBULAR JOINT SYNDROME [None]
  - DRUG ADMINISTRATION ERROR [None]
  - MOUTH ULCERATION [None]
  - OSTEONECROSIS OF JAW [None]
  - CONCUSSION [None]
  - ORAL INFECTION [None]
  - SICK SINUS SYNDROME [None]
  - LUNG NEOPLASM [None]
  - ESSENTIAL HYPERTENSION [None]
  - PATIENT-DEVICE INCOMPATIBILITY [None]
  - BRADYARRHYTHMIA [None]
  - HAEMATURIA [None]
  - PERIPHERAL ARTERIAL OCCLUSIVE DISEASE [None]
  - URTICARIA [None]
  - CHRONIC OBSTRUCTIVE PULMONARY DISEASE [None]
  - GASTRIC ULCER [None]
  - PNEUMONIA [None]
  - ORAL DISORDER [None]
  - LUMBAR SPINAL STENOSIS [None]
  - HYPOTENSION [None]
